FAERS Safety Report 23416771 (Version 1)
Quarter: 2024Q1

REPORT INFORMATION
  Report Type: Spontaneous
  Country: US (occurrence: None)
  Receive Date: 20240117
  Receipt Date: 20240117
  Transmission Date: 20240410
  Serious: Yes (Hospitalization)
  Sender: FDA-Public Use
  Company Number: None

PATIENT
  Age: 78 Year
  Sex: Female

DRUGS (1)
  1. YESCARTA [Suspect]
     Active Substance: AXICABTAGENE CILOLEUCEL
     Indication: Follicular lymphoma recurrent
     Dosage: FREQUENCY : ONCE;?
     Route: 042
     Dates: start: 20230906, end: 20230906

REACTIONS (6)
  - Myalgia [None]
  - Pyrexia [None]
  - Confusional state [None]
  - Headache [None]
  - C-reactive protein increased [None]
  - Neurotoxicity [None]

NARRATIVE: CASE EVENT DATE: 20230915
